FAERS Safety Report 8367969-4 (Version None)
Quarter: 2012Q2

REPORT INFORMATION
  Report Type: 
  Country: None (occurrence: None)
  Receive Date: 20120517
  Receipt Date: 20120504
  Transmission Date: 20120825
  Serious: Yes (Hospitalization)
  Sender: FDA-Public Use
  Company Number: DE-ROCHE-1066085

PATIENT
  Age: 65 Year
  Sex: Female
  Weight: 46.4 kg

DRUGS (5)
  1. CARBOPLATIN [Suspect]
     Indication: OVARIAN CANCER
     Dosage: 1465
     Route: 042
     Dates: start: 20120227, end: 20120418
  2. AVASTIN [Suspect]
     Indication: OVARIAN CANCER
     Route: 042
     Dates: start: 20120321, end: 20120418
  3. DIPYRONE TAB [Concomitant]
     Dosage: 2 UNIT DAILY
     Route: 048
     Dates: start: 20120502
  4. PACLITAXEL [Suspect]
     Indication: OVARIAN CANCER
     Route: 042
     Dates: start: 20120227, end: 20120418
  5. PANTOPRAZOLE [Concomitant]
     Dosage: 2 UNITS DAILY
     Route: 048
     Dates: start: 20120502

REACTIONS (7)
  - NAUSEA [None]
  - GENERAL PHYSICAL HEALTH DETERIORATION [None]
  - INFECTION [None]
  - DECREASED APPETITE [None]
  - FATIGUE [None]
  - ANAEMIA [None]
  - WEIGHT DECREASED [None]
